FAERS Safety Report 8793694 (Version 3)
Quarter: 2012Q4

REPORT INFORMATION
  Report Type: 
  Country: US (occurrence: US)
  Receive Date: 20120917
  Receipt Date: 20121115
  Transmission Date: 20130627
  Serious: No
  Sender: FDA-Public Use
  Company Number: BR-ASTRAZENECA-2012SE64958

PATIENT
  Age: 46 Year
  Sex: Male
  Weight: 88.5 kg

DRUGS (7)
  1. SEROQUEL XR [Suspect]
     Indication: BIPOLAR DISORDER
     Route: 048
  2. SEROQUEL XR [Suspect]
     Indication: PARANOIA
     Route: 048
  3. SEROQUEL XR [Suspect]
     Indication: BIPOLAR DISORDER
     Dosage: 300 MG SPLIT IN HALF FOR TOTAL DAILY DOSE OF 450 MG
     Route: 048
  4. SEROQUEL XR [Suspect]
     Indication: PARANOIA
     Dosage: 300 MG SPLIT IN HALF FOR TOTAL DAILY DOSE OF 450 MG
     Route: 048
  5. SEROQUEL XR [Suspect]
     Indication: BIPOLAR DISORDER
     Route: 048
  6. SEROQUEL XR [Suspect]
     Indication: PARANOIA
     Route: 048
  7. TESTOSTERONE [Concomitant]
     Dosage: 1 MG OF 200 MG STRENGTH BIKWK
     Dates: start: 2008

REACTIONS (13)
  - Bipolar disorder [Unknown]
  - Malaise [Unknown]
  - Mood swings [Unknown]
  - Paranoia [Unknown]
  - Abnormal behaviour [Unknown]
  - Thinking abnormal [Recovered/Resolved]
  - Speech disorder [Unknown]
  - Hypersomnia [Unknown]
  - Weight increased [Unknown]
  - Fatigue [Unknown]
  - Drug dose omission [Unknown]
  - Drug administration error [Unknown]
  - Intentional drug misuse [Unknown]
